FAERS Safety Report 5282540-9 (Version None)
Quarter: 2007Q1

REPORT INFORMATION
  Report Type: 
  Country: None (occurrence: None)
  Receive Date: 20070326
  Receipt Date: 20070319
  Transmission Date: 20070707
  Serious: Yes (Death)
  Sender: FDA-Public Use
  Company Number: 163-21880-06120137

PATIENT
  Age: 83 Year
  Sex: Female

DRUGS (1)
  1. REVLIMID [Suspect]
     Indication: ACUTE MYELOID LEUKAEMIA
     Dosage: 25 MG, DAILY X21 DAYS, ORAL
     Route: 048
     Dates: start: 20061103

REACTIONS (5)
  - CONTUSION [None]
  - DIARRHOEA [None]
  - DISEASE PROGRESSION [None]
  - DRUG INEFFECTIVE [None]
  - MUSCLE SPASMS [None]
